FAERS Safety Report 6482303-2 (Version None)
Quarter: 2009Q4

REPORT INFORMATION
  Report Type: 
  Country: None (occurrence: None)
  Receive Date: 20091208
  Receipt Date: 20090714
  Transmission Date: 20100525
  Serious: No
  Sender: FDA-Public Use
  Company Number: US-AMGEN-US347453

PATIENT
  Sex: Female

DRUGS (14)
  1. ENBREL [Suspect]
     Indication: RHEUMATOID ARTHRITIS
     Route: 058
     Dates: start: 20090423, end: 20090611
  2. METHOTREXATE [Concomitant]
     Route: 048
  3. SYNTHROID [Concomitant]
     Route: 048
  4. MULTI-VITAMINS [Concomitant]
     Route: 048
  5. DOCUSATE [Concomitant]
     Route: 048
  6. FOLIC ACID [Concomitant]
     Route: 048
  7. CALCIUM CARBONATE/VITAMIN D [Concomitant]
     Route: 048
  8. IBUPROFEN [Concomitant]
     Route: 048
  9. AYGESTIN [Concomitant]
     Route: 048
  10. PSEUDOEPHEDRINE W/TRIPROLIDINE [Concomitant]
     Route: 048
  11. PREDNISONE [Concomitant]
     Route: 048
  12. HUMIRA [Concomitant]
  13. CIPROFLOXACIN HYDROCHLORIDE [Concomitant]
     Route: 048
  14. SILVADENE [Concomitant]
     Route: 061

REACTIONS (6)
  - COUGH [None]
  - INJECTION SITE RASH [None]
  - OROPHARYNGEAL PAIN [None]
  - PARANASAL SINUS HYPERSECRETION [None]
  - RESPIRATORY TRACT CONGESTION [None]
  - VAGINAL DISCHARGE [None]
